FAERS Safety Report 10569843 (Version 2)
Quarter: 2014Q4

REPORT INFORMATION
  Report Type: Spontaneous
  Country: DE (occurrence: DE)
  Receive Date: 20141107
  Receipt Date: 20141203
  Transmission Date: 20150529
  Serious: Yes (Hospitalization)
  Sender: FDA-Public Use
  Company Number: DE-BRISTOL-MYERS SQUIBB COMPANY-21544127

PATIENT
  Sex: Female

DRUGS (1)
  1. ELIQUIS [Suspect]
     Active Substance: APIXABAN
     Indication: THROMBOSIS PROPHYLAXIS
     Dosage: 2 X 10 MG FOR 7 DAYS FOLLOWED BY 2 X 5 MG
     Dates: start: 2014

REACTIONS (2)
  - Medication error [Unknown]
  - Adverse event [Unknown]

NARRATIVE: CASE EVENT DATE: 2014
